FAERS Safety Report 13068524 (Version 2)
Quarter: 2017Q1

REPORT INFORMATION
  Report Type: Spontaneous
  Country: JP (occurrence: JP)
  Receive Date: 20161228
  Receipt Date: 20170125
  Transmission Date: 20170428
  Serious: Yes (Other)
  Sender: FDA-Public Use
  Company Number: JP-PFIZER INC-2016598641

PATIENT
  Age: 49 Year
  Sex: Male
  Weight: 53 kg

DRUGS (2)
  1. ANCARON [Suspect]
     Active Substance: AMIODARONE HYDROCHLORIDE
     Indication: VENTRICULAR TACHYCARDIA
     Dosage: 200 MG, UNK
     Route: 048
  2. ANCARON [Suspect]
     Active Substance: AMIODARONE HYDROCHLORIDE
     Dosage: 50 MG, UNK
     Route: 048

REACTIONS (1)
  - Chest X-ray abnormal [Not Recovered/Not Resolved]
